FAERS Safety Report 4338918-0 (Version None)
Quarter: 2004Q2

REPORT INFORMATION
  Report Type: 
  Country: None (occurrence: None)
  Receive Date: 20040409
  Receipt Date: 20040330
  Transmission Date: 20050107
  Serious: Yes (Hospitalization, Other)
  Sender: FDA-Public Use
  Company Number: 2002058523

PATIENT
  Sex: Female
  Weight: 48.0813 kg

DRUGS (3)
  1. ZOLOFT [Suspect]
     Indication: DEPRESSION
     Dosage: 25 MG (DAILY), ORAL
     Route: 048
     Dates: start: 19980210
  2. LEVOTHYROXINE SODIUM [Suspect]
     Indication: HYPOTHYROIDISM
     Dosage: 50 MCG (DAILY), ORAL
     Route: 048
     Dates: start: 20040315
  3. CYPROHEPTADINE HCL [Suspect]
     Indication: ILL-DEFINED DISORDER

REACTIONS (31)
  - AMENORRHOEA [None]
  - ANOREXIA [None]
  - ANXIETY [None]
  - CONDITION AGGRAVATED [None]
  - CONSTIPATION [None]
  - DEPRESSION [None]
  - DISTURBANCE IN ATTENTION [None]
  - DRUG INEFFECTIVE [None]
  - DRUG INTERACTION [None]
  - DRUG INTOLERANCE [None]
  - DRUG LEVEL INCREASED [None]
  - DRY MOUTH [None]
  - FEELING ABNORMAL [None]
  - GASTROINTESTINAL DISORDER [None]
  - GASTROINTESTINAL INFECTION [None]
  - HAEMORRHOIDS [None]
  - HYPOTHYROIDISM [None]
  - INSOMNIA [None]
  - IRRITABLE BOWEL SYNDROME [None]
  - MALAISE [None]
  - MENSTRUAL DISORDER [None]
  - MENSTRUATION IRREGULAR [None]
  - METABOLIC DISORDER [None]
  - NERVOUSNESS [None]
  - PAIN [None]
  - STRESS SYMPTOMS [None]
  - TONGUE BLISTERING [None]
  - TONGUE GEOGRAPHIC [None]
  - TONGUE ULCERATION [None]
  - WEIGHT DECREASED [None]
  - WEIGHT INCREASED [None]
